FAERS Safety Report 19575531 (Version 1)
Quarter: 2021Q3

REPORT INFORMATION
  Report Type: Spontaneous
  Country: US (occurrence: US)
  Receive Date: 20210719
  Receipt Date: 20210719
  Transmission Date: 20211014
  Serious: No
  Sender: FDA-Public Use
  Company Number: US-AMGEN-USASP2021107946

PATIENT
  Age: 57 Year
  Sex: Male

DRUGS (8)
  1. DULOXETINE. [Concomitant]
     Active Substance: DULOXETINE
  2. FOLIC ACID. [Concomitant]
     Active Substance: FOLIC ACID
  3. LEVOTHYROXINE. [Concomitant]
     Active Substance: LEVOTHYROXINE
  4. TESTOSTERONE CYPIONATE. [Concomitant]
     Active Substance: TESTOSTERONE CYPIONATE
  5. OTEZLA [Suspect]
     Active Substance: APREMILAST
     Indication: PSORIATIC ARTHROPATHY
     Dosage: UNK UNK, BID
     Route: 048
     Dates: start: 20210609
  6. OXAZEPAM. [Concomitant]
     Active Substance: OXAZEPAM
  7. LISINOPRIL. [Concomitant]
     Active Substance: LISINOPRIL
  8. BETAMETHASONE VALERATE. [Concomitant]
     Active Substance: BETAMETHASONE VALERATE

REACTIONS (2)
  - Nausea [Recovered/Resolved]
  - Diarrhoea [Recovered/Resolved]

NARRATIVE: CASE EVENT DATE: 202106
